FAERS Safety Report 23776716 (Version 3)
Quarter: 2024Q2

REPORT INFORMATION
  Report Type: Spontaneous
  Country: DE (occurrence: DE)
  Receive Date: 20240424
  Receipt Date: 20240529
  Transmission Date: 20240716
  Serious: Yes (Hospitalization, Other)
  Sender: FDA-Public Use
  Company Number: DE-002147023-NVSC2024DE083560

PATIENT
  Sex: Female
  Weight: 70 kg

DRUGS (4)
  1. LUTATHERA [Suspect]
     Active Substance: LUTETIUM OXODOTREOTIDE LU-177
     Indication: Metastases to peritoneum
     Dosage: 7300 MBQ
     Route: 065
     Dates: start: 20221206, end: 20221208
  2. LUTATHERA [Suspect]
     Active Substance: LUTETIUM OXODOTREOTIDE LU-177
     Indication: Neuroendocrine tumour
     Dosage: 310 MBQ
     Route: 065
     Dates: start: 20230207, end: 20230209
  3. LUTATHERA [Suspect]
     Active Substance: LUTETIUM OXODOTREOTIDE LU-177
     Dosage: 7400 MBQ
     Route: 065
     Dates: start: 20230424, end: 20230426
  4. LUTATHERA [Suspect]
     Active Substance: LUTETIUM OXODOTREOTIDE LU-177
     Dosage: 7400 MBQ
     Route: 065
     Dates: start: 20230718, end: 20230720

REACTIONS (14)
  - Urinary retention [Not Recovered/Not Resolved]
  - Pyelocaliectasis [Not Recovered/Not Resolved]
  - Ureteral wall thickening [Not Recovered/Not Resolved]
  - Leukopenia [Unknown]
  - Bacteriuria [Unknown]
  - Leukocyturia [Unknown]
  - Ovarian cyst [Unknown]
  - Hypersensitivity [Unknown]
  - Flushing [Unknown]
  - Dyspnoea exertional [Unknown]
  - Diarrhoea [Recovered/Resolved]
  - Anaemia [Unknown]
  - Ureteric compression [Unknown]
  - Abdominal adhesions [Unknown]

NARRATIVE: CASE EVENT DATE: 20231101
